FAERS Safety Report 7318067-X (Version None)
Quarter: 2011Q1

REPORT INFORMATION
  Report Type: 
  Country: None (occurrence: None)
  Receive Date: 20110228
  Receipt Date: 20110216
  Transmission Date: 20110831
  Serious: Yes (Hospitalization)
  Sender: FDA-Public Use
  Company Number: US-BIOGENIDEC-2011BI005975

PATIENT
  Age: 44 Year
  Sex: Male

DRUGS (1)
  1. TYSABRI [Suspect]
     Indication: MULTIPLE SCLEROSIS
     Route: 042
     Dates: start: 20101218

REACTIONS (6)
  - DYSPEPSIA [None]
  - PSYCHOMOTOR HYPERACTIVITY [None]
  - GASTROINTESTINAL HAEMORRHAGE [None]
  - HEADACHE [None]
  - RASH MACULAR [None]
  - PRURITUS [None]
